FAERS Safety Report 6271254-4 (Version None)
Quarter: 2009Q3

REPORT INFORMATION
  Report Type: 
  Country: None (occurrence: None)
  Receive Date: 20090717
  Receipt Date: 20090713
  Transmission Date: 20100115
  Serious: Yes (Other)
  Sender: FDA-Public Use
  Company Number: US-TEVA-197965USA

PATIENT
  Sex: Female

DRUGS (2)
  1. CLARAVIS [Suspect]
     Route: 048
     Dates: start: 20090314, end: 20090607
  2. BIRTH CONTROL PILLS [Concomitant]
     Indication: ACNE
     Dates: start: 20090201

REACTIONS (1)
  - UNINTENDED PREGNANCY [None]
